FAERS Safety Report 17053814 (Version 1)
Quarter: 2019Q4

REPORT INFORMATION
  Report Type: Spontaneous
  Country: US (occurrence: US)
  Receive Date: 20191022
  Receipt Date: 20191022
  Transmission Date: 20200122
  Serious: Yes (Hospitalization)
  Sender: FDA-Public Use
  Company Number: None

PATIENT
  Sex: Female

DRUGS (7)
  1. CYANOCOBALAM [Concomitant]
     Active Substance: CYANOCOBALAMIN
  2. CODEINE [Concomitant]
     Active Substance: CODEINE
  3. ASPIRIN. [Concomitant]
     Active Substance: ASPIRIN
  4. DIAZEPAM. [Concomitant]
     Active Substance: DIAZEPAM
  5. REPATHA [Suspect]
     Active Substance: EVOLOCUMAB
     Indication: HYPERLIPIDAEMIA
     Dosage: ?          OTHER FREQUENCY:EVERY2WEEKS;?
     Route: 058
     Dates: start: 20190718
  6. FUROSEMIDE. [Concomitant]
     Active Substance: FUROSEMIDE
  7. LEVOFLOXACIN. [Concomitant]
     Active Substance: LEVOFLOXACIN

REACTIONS (4)
  - Arterial bypass operation [None]
  - Myalgia [None]
  - Back pain [None]
  - Muscle spasms [None]
